FAERS Safety Report 20192646 (Version 2)
Quarter: 2021Q4

REPORT INFORMATION
  Report Type: Other
  Country: CN (occurrence: None)
  Receive Date: 20211216
  Receipt Date: 20211228
  Transmission Date: 20220303
  Serious: Yes (Life-Threatening, Hospitalization)
  Sender: FDA-Public Use
  Company Number: CN-ROCHE-2970793

PATIENT
  Age: 63 Year
  Sex: Male

DRUGS (2)
  1. XELODA [Suspect]
     Active Substance: CAPECITABINE
     Indication: Adenocarcinoma of colon
     Dosage: FOR 14 DAYS OF 3 CYCLE.
     Route: 048
  2. OXALIPLATIN [Suspect]
     Active Substance: OXALIPLATIN
     Indication: Adenocarcinoma of colon
     Dosage: ON DAY 1 2 HOURS INFUSION EVERY 3 WEEK
     Route: 042

REACTIONS (2)
  - Terminal ileitis [Recovered/Resolved]
  - Rash [Unknown]
